FAERS Safety Report 13067182 (Version 1)
Quarter: 2016Q4

REPORT INFORMATION
  Report Type: Report from Study
  Country: US (occurrence: US)
  Receive Date: 20161227
  Receipt Date: 20161227
  Transmission Date: 20170207
  Serious: No
  Sender: FDA-Public Use
  Company Number: PHHY2013US099816

PATIENT
  Age: 38 Year
  Sex: Female

DRUGS (1)
  1. GILENYA [Suspect]
     Active Substance: FINGOLIMOD HYDROCHLORIDE
     Indication: MULTIPLE SCLEROSIS
     Route: 065

REACTIONS (7)
  - Blood glucose increased [Recovered/Resolved]
  - Blood urea increased [Unknown]
  - Gamma-glutamyltransferase increased [Unknown]
  - Blood creatinine increased [Recovered/Resolved]
  - Blood alkaline phosphatase decreased [Recovered/Resolved]
  - Blood uric acid decreased [Unknown]
  - Alanine aminotransferase increased [Recovered/Resolved]

NARRATIVE: CASE EVENT DATE: 20130425
